FAERS Safety Report 8791384 (Version 1)
Quarter: 2012Q4

REPORT INFORMATION
  Report Type: Spontaneous
  Country: US (occurrence: None)
  Receive Date: 20120914
  Receipt Date: 20120914
  Transmission Date: 20130627
  Serious: Yes (Death)
  Sender: FDA-Public Use
  Company Number: None

PATIENT
  Age: 80 Year
  Sex: Male

DRUGS (1)
  1. TARCEVA [Suspect]
     Dosage: 100 mg 1 daily mouth took 10 pills
     Route: 048
     Dates: start: 20120807, end: 20120816

REACTIONS (8)
  - Intestinal perforation [None]
  - Rash [None]
  - Eye irritation [None]
  - Corneal disorder [None]
  - Eye disorder [None]
  - Blindness [None]
  - Lung disorder [None]
  - Pneumonia [None]
